FAERS Safety Report 7406036-0 (Version None)
Quarter: 2011Q2

REPORT INFORMATION
  Report Type: 
  Country: None (occurrence: None)
  Receive Date: 20110411
  Receipt Date: 20110401
  Transmission Date: 20111010
  Serious: Yes (Death)
  Sender: FDA-Public Use
  Company Number: A0918805A

PATIENT
  Age: 72 Year
  Sex: Male

DRUGS (1)
  1. VOTRIENT [Suspect]
     Dosage: 800MG PER DAY
     Route: 048

REACTIONS (1)
  - DEATH [None]
